FAERS Safety Report 11467382 (Version 1)
Quarter: 2015Q3

REPORT INFORMATION
  Report Type: Spontaneous
  Country: US (occurrence: None)
  Receive Date: 20150903
  Receipt Date: 20150903
  Transmission Date: 20151125
  Serious: Yes (Hospitalization)
  Sender: FDA-Public Use
  Company Number: KAD201509-003064

PATIENT
  Sex: Female

DRUGS (2)
  1. VIEKIRA PAK [Suspect]
     Active Substance: DASABUVIR\OMBITASVIR\PARITAPREVIR\RITONAVIR
     Indication: HEPATITIS C
     Dosage: 250/12.5/75/50 MG
     Route: 048
     Dates: start: 201503
  2. RIBASPHERE [Suspect]
     Active Substance: RIBAVIRIN
     Indication: HEPATITIS C
     Dosage: 400 MG EVERY AM AND 600 MG EVERY PM
     Route: 048
     Dates: start: 201503

REACTIONS (7)
  - Syncope [None]
  - Blood pressure increased [None]
  - Headache [None]
  - Flushing [None]
  - Swelling face [None]
  - Respiratory rate increased [None]
  - Nausea [None]

NARRATIVE: CASE EVENT DATE: 20150305
